FAERS Safety Report 8579375-8 (Version None)
Quarter: 2012Q3

REPORT INFORMATION
  Report Type: 
  Country: None (occurrence: None)
  Receive Date: 20120808
  Receipt Date: 20120801
  Transmission Date: 20120928
  Serious: Yes (Death, Hospitalization)
  Sender: FDA-Public Use
  Company Number: FR-PFIZER INC-2012137821

PATIENT
  Age: 77 Year
  Sex: Female

DRUGS (4)
  1. LYRICA [Suspect]
     Indication: NEURALGIA
     Dosage: 300 MG, 2X/DAY
     Route: 048
     Dates: start: 20111101
  2. TRIMEBUTINE [Concomitant]
  3. OXYCONTIN [Concomitant]
  4. DOMPERIDONE [Concomitant]

REACTIONS (2)
  - LUNG INFECTION [None]
  - CARDIAC FAILURE [None]
